FAERS Safety Report 16949288 (Version 1)
Quarter: 2019Q4

REPORT INFORMATION
  Report Type: Spontaneous
  Country: US (occurrence: US)
  Receive Date: 20191023
  Receipt Date: 20191023
  Transmission Date: 20200122
  Serious: Yes (Other)
  Sender: FDA-Public Use
  Company Number: US-JNJFOC-20191018239

PATIENT
  Sex: Male

DRUGS (1)
  1. NEUTROGENA FACIAL CLEANSER UNSPECIFIED [SALICYLIC ACID] [Suspect]
     Active Substance: SALICYLIC ACID
     Indication: PRODUCT USED FOR UNKNOWN INDICATION
     Route: 061

REACTIONS (5)
  - Application site rash [Unknown]
  - Exposure to toxic agent [Unknown]
  - Syncope [Unknown]
  - Application site reaction [Unknown]
  - Application site dryness [Unknown]
